FAERS Safety Report 6412847-0 (Version None)
Quarter: 2009Q4

REPORT INFORMATION
  Report Type: 
  Country: None (occurrence: None)
  Receive Date: 20091023
  Receipt Date: 20091014
  Transmission Date: 20100525
  Serious: Yes (Other)
  Sender: FDA-Public Use
  Company Number: BR-ABBOTT-09P-020-0602930-00

PATIENT
  Sex: Female
  Weight: 84 kg

DRUGS (20)
  1. HUMIRA [Suspect]
     Indication: RHEUMATOID ARTHRITIS
     Route: 058
     Dates: start: 20090227
  2. HUMIRA [Suspect]
     Route: 058
     Dates: end: 20090819
  3. METHOTREXATE [Concomitant]
     Indication: RHEUMATOID ARTHRITIS
     Route: 048
     Dates: start: 19890101
  4. FOLIC ACID [Concomitant]
     Indication: MINERAL SUPPLEMENTATION
     Route: 048
     Dates: start: 20050726
  5. CHLOROQUINE, DICLOFENAC [Concomitant]
     Indication: DRUG USE FOR UNKNOWN INDICATION
     Route: 048
     Dates: start: 20050726
  6. PREDNISONE [Concomitant]
     Indication: RHEUMATOID ARTHRITIS
     Route: 048
     Dates: start: 20050726
  7. DIPYRONE [Concomitant]
     Indication: PAIN
     Route: 048
     Dates: start: 20050726
  8. VOLTAREN [Concomitant]
     Indication: PAIN
     Route: 048
     Dates: start: 20050726
  9. ENALAPRIL MALEATE [Concomitant]
     Indication: HYPERTENSION
     Route: 048
  10. LASIX [Concomitant]
     Indication: HYPERTENSION
     Route: 048
  11. ESPIROLONA [Concomitant]
     Indication: HYPERTENSION
     Route: 048
  12. SUSTRATE [Concomitant]
     Indication: HYPERTENSION
     Route: 048
  13. OMEPRAZOLE [Concomitant]
     Indication: GASTRIC DISORDER
     Route: 048
  14. DIGOXIN [Concomitant]
     Indication: CARDIAC DISORDER
     Route: 048
  15. AMLODIPINE [Concomitant]
     Indication: HYPERTENSION
     Route: 048
  16. LAPTEC [Concomitant]
     Indication: CARDIAC DISORDER
     Route: 048
  17. FLUCONAZOLE [Concomitant]
     Indication: SKIN FISSURES
  18. KETOCONAZOLE [Concomitant]
     Indication: RASH
     Route: 061
  19. ALUMINUM HYDROXIDE GEL [Concomitant]
     Indication: GASTRIC DISORDER
     Route: 048
     Dates: start: 20090302
  20. AEROLIN [Concomitant]
     Indication: BRONCHITIS
     Route: 048

REACTIONS (3)
  - FALL [None]
  - INJECTION SITE DISCOLOURATION [None]
  - JOINT INJURY [None]
